FAERS Safety Report 18862681 (Version 1)
Quarter: 2021Q1

REPORT INFORMATION
  Report Type: Spontaneous
  Country: US (occurrence: US)
  Receive Date: 20210209
  Receipt Date: 20210209
  Transmission Date: 20210420
  Serious: No
  Sender: FDA-Public Use
  Company Number: US-PURDUE PHARMA-USA-2020-0180198

PATIENT
  Age: 77 Year
  Sex: Male

DRUGS (1)
  1. BUTRANS [Suspect]
     Active Substance: BUPRENORPHINE
     Indication: PAIN
     Dosage: 15 MCG/HR, WEEKLY
     Route: 062
     Dates: start: 20201122

REACTIONS (6)
  - Product adhesion issue [Unknown]
  - Wrong technique in product usage process [Unknown]
  - Pain [Unknown]
  - Drug ineffective [Unknown]
  - Inadequate analgesia [Unknown]
  - Insomnia [Unknown]

NARRATIVE: CASE EVENT DATE: 20201129
